FAERS Safety Report 15604473 (Version 1)
Quarter: 2018Q4

REPORT INFORMATION
  Report Type: Report from Study
  Country: BR (occurrence: BR)
  Receive Date: 20181110
  Receipt Date: 20181110
  Transmission Date: 20190205
  Serious: Yes (Other)
  Sender: FDA-Public Use
  Company Number: PHHY2018BR086987

PATIENT
  Age: 66 Year
  Sex: Female

DRUGS (5)
  1. ENTRESTO [Suspect]
     Active Substance: SACUBITRIL\VALSARTAN
     Indication: CARDIAC DISORDER
     Dosage: 1 DF (SACUBITRIL 24 MG/ VALSARTAN 26 MG), BID (IN THE MORNING AND AT NIGHT)
     Route: 048
  2. ALDACTONE [Suspect]
     Active Substance: SPIRONOLACTONE
     Indication: PRODUCT USED FOR UNKNOWN INDICATION
     Route: 065
  3. DIOVAN [Suspect]
     Active Substance: VALSARTAN
     Indication: HYPERTENSION
     Dosage: UNK UNK, QD (VALSARTAN 80)
     Route: 048
  4. DIOVAN [Suspect]
     Active Substance: VALSARTAN
     Dosage: UNK UNK, QD (VALSARTAN 160)
     Route: 048
  5. ENTRESTO [Suspect]
     Active Substance: SACUBITRIL\VALSARTAN
     Dosage: 0.5 DF, BID
     Route: 065
     Dates: start: 20180919

REACTIONS (21)
  - Malaise [Recovered/Resolved]
  - Productive cough [Recovered/Resolved]
  - Cardiac disorder [Recovering/Resolving]
  - Dyspnoea [Recovered/Resolved]
  - Blood pressure fluctuation [Recovered/Resolved]
  - Lung infection [Recovered/Resolved]
  - Blood pressure increased [Unknown]
  - Nausea [Recovering/Resolving]
  - Product use in unapproved indication [Unknown]
  - Product prescribing error [Unknown]
  - Nasopharyngitis [Recovered/Resolved]
  - Cough [Recovered/Resolved]
  - Heart rate increased [Recovering/Resolving]
  - Body temperature abnormal [Recovered/Resolved]
  - Decreased immune responsiveness [Recovered/Resolved]
  - Dysphonia [Recovered/Resolved]
  - Secretion discharge [Recovered/Resolved]
  - Inappropriate schedule of product administration [Unknown]
  - Hypotension [Unknown]
  - Fatigue [Recovering/Resolving]
  - Wrong technique in product usage process [Recovered/Resolved]

NARRATIVE: CASE EVENT DATE: 201601
